FAERS Safety Report 8942425 (Version 1)
Quarter: 2012Q4

REPORT INFORMATION
  Report Type: 
  Country: CN (occurrence: CN)
  Receive Date: 20121204
  Receipt Date: 20121204
  Transmission Date: 20130627
  Serious: Yes (Life-Threatening)
  Sender: FDA-Public Use
  Company Number: CN-BAYER-2012-126660

PATIENT
  Age: 65 Year
  Sex: Female
  Weight: 62 kg

DRUGS (3)
  1. AVELOX [Suspect]
     Indication: LUNG INFECTION
     Dosage: 400 mg, QD
     Route: 041
     Dates: start: 20110307, end: 20110308
  2. CEFTAZIDIME [Concomitant]
     Indication: INFECTION
  3. METRONIDAZOLE [Concomitant]
     Indication: INFECTION

REACTIONS (2)
  - Asphyxia [Recovered/Resolved]
  - Palpitations [Not Recovered/Not Resolved]
